FAERS Safety Report 8599434-3 (Version None)
Quarter: 2012Q3

REPORT INFORMATION
  Report Type: 
  Country: None (occurrence: None)
  Receive Date: 20120816
  Receipt Date: 20120814
  Transmission Date: 20120928
  Serious: Yes (Death, Other)
  Sender: FDA-Public Use
  Company Number: US-JNJFOC-20120613204

PATIENT

DRUGS (7)
  1. CYCLOPHOSPHAMIDE [Suspect]
     Indication: DIFFUSE LARGE B-CELL LYMPHOMA
     Dosage: EVERY 21 DAYS FOR A MAXIMUM OF 8 CYCLES
     Route: 065
  2. VINCRISTINE [Suspect]
     Indication: DIFFUSE LARGE B-CELL LYMPHOMA
     Dosage: EVERY 21 DAYS FOR A MAXIMUM OF 8 CYCLES
     Route: 065
  3. PREDNISONE TAB [Suspect]
     Indication: DIFFUSE LARGE B-CELL LYMPHOMA
     Dosage: EVERY 21 DAYS FOR A MAXIMUM OF 8 CYCLES
     Route: 065
  4. DOXORUBICIN HYDROCHLORIDE [Suspect]
     Indication: DIFFUSE LARGE B-CELL LYMPHOMA
     Dosage: EVERY 21 DAYS FOR A MAXIMUM OF 8 CYCLES
     Route: 042
  5. RITUXIMAB [Suspect]
     Indication: DIFFUSE LARGE B-CELL LYMPHOMA
     Dosage: EVERY 21 DAYS FOR A MAXIMUM OF 8 CYCLES
     Route: 065
  6. ADRIAMYCIN PFS [Suspect]
     Indication: DIFFUSE LARGE B-CELL LYMPHOMA
     Dosage: EVERY 21 DAYS FOR A MAXIMUM OF 8 CYCLES
     Route: 042
  7. BEVACIZUMAB [Suspect]
     Indication: DIFFUSE LARGE B-CELL LYMPHOMA
     Dosage: ON DAY 1, EVERY 21 DAYS FOR A MAXIMUM OF 8 CYCLES
     Route: 065

REACTIONS (6)
  - GASTROINTESTINAL PERFORATION [None]
  - LEFT VENTRICULAR DYSFUNCTION [None]
  - THROMBOSIS [None]
  - HYPERTENSION [None]
  - BLOOD DISORDER [None]
  - SUDDEN DEATH [None]
